FAERS Safety Report 18254001 (Version 1)
Quarter: 2020Q3

REPORT INFORMATION
  Report Type: Report from Study
  Country: US (occurrence: US)
  Receive Date: 20200910
  Receipt Date: 20200910
  Transmission Date: 20201103
  Serious: Yes (Other)
  Sender: FDA-Public Use
  Company Number: US-JNJFOC-20200848643

PATIENT
  Sex: Female

DRUGS (4)
  1. OXYGEN. [Concomitant]
     Active Substance: OXYGEN
  2. OPSUMIT [Suspect]
     Active Substance: MACITENTAN
     Indication: CARDIAC FUNCTION TEST ABNORMAL
     Route: 065
  3. UPTRAVI [Suspect]
     Active Substance: SELEXIPAG
     Indication: CARDIAC FUNCTION TEST ABNORMAL
     Route: 065
  4. TRACLEER [Suspect]
     Active Substance: BOSENTAN
     Indication: CARDIAC FUNCTION TEST ABNORMAL
     Route: 065

REACTIONS (6)
  - Blood magnesium decreased [Unknown]
  - Arrhythmia [Recovered/Resolved]
  - Palpitations [Recovered/Resolved]
  - Drug ineffective [Recovered/Resolved]
  - Laboratory test abnormal [Recovered/Resolved]
  - Blood sodium decreased [Unknown]
